FAERS Safety Report 11878209 (Version 2)
Quarter: 2016Q2

REPORT INFORMATION
  Report Type: Spontaneous
  Country: US (occurrence: US)
  Receive Date: 20151230
  Receipt Date: 20160426
  Transmission Date: 20160815
  Serious: Yes (Death, Hospitalization, Other)
  Sender: FDA-Public Use
  Company Number: US-BAYER-2015-497248

PATIENT
  Age: 74 Year
  Sex: Male

DRUGS (1)
  1. ALEVE [Suspect]
     Active Substance: NAPROXEN SODIUM
     Indication: BACK PAIN
     Dosage: 2 DF, QD
     Route: 048
     Dates: start: 2011, end: 201512

REACTIONS (5)
  - Renal failure [Fatal]
  - Acute kidney injury [Not Recovered/Not Resolved]
  - Hospitalisation [None]
  - Asthenia [Fatal]
  - Product use issue [None]

NARRATIVE: CASE EVENT DATE: 201512
